FAERS Safety Report 9810118 (Version 2)
Quarter: 2015Q4

REPORT INFORMATION
  Report Type: Spontaneous
  Country: US (occurrence: US)
  Receive Date: 20140110
  Receipt Date: 20151228
  Transmission Date: 20160305
  Serious: Yes (Other)
  Sender: FDA-Public Use
  Company Number: US-SANOFI-AVENTIS-2013SA079559

PATIENT

DRUGS (1)
  1. PLAVIX [Suspect]
     Active Substance: CLOPIDOGREL BISULFATE
     Indication: COAGULOPATHY
     Route: 065

REACTIONS (5)
  - Cerebral haemorrhage [Unknown]
  - Condition aggravated [Unknown]
  - Aphasia [Unknown]
  - Ulcer haemorrhage [Unknown]
  - Road traffic accident [Unknown]

NARRATIVE: CASE EVENT DATE: 2008
